FAERS Safety Report 24918531 (Version 2)
Quarter: 2025Q1

REPORT INFORMATION
  Report Type: Spontaneous
  Country: US (occurrence: US)
  Receive Date: 20250203
  Receipt Date: 20250213
  Transmission Date: 20250409
  Serious: Yes (Hospitalization)
  Sender: SANDOZ
  Company Number: US-SANDOZ-SDZ2025US005516

PATIENT
  Age: 25 Year
  Sex: Male
  Weight: 63.5 kg

DRUGS (6)
  1. BUDESONIDE [Suspect]
     Active Substance: BUDESONIDE
     Indication: Product used for unknown indication
     Route: 065
  2. INOTUZUMAB OZOGAMICIN [Suspect]
     Active Substance: INOTUZUMAB OZOGAMICIN
     Indication: Acute lymphocytic leukaemia
     Route: 042
     Dates: start: 20241022, end: 20241022
  3. INOTUZUMAB OZOGAMICIN [Suspect]
     Active Substance: INOTUZUMAB OZOGAMICIN
     Route: 042
     Dates: start: 20241213, end: 20241213
  4. JAKAFI [Suspect]
     Active Substance: RUXOLITINIB
     Indication: Acute lymphocytic leukaemia
     Dosage: 5 MG, BID
     Route: 048
     Dates: start: 20241205
  5. PREDNISONE [Suspect]
     Active Substance: PREDNISONE
     Indication: Acute lymphocytic leukaemia
     Dosage: 5 MG, BID
     Route: 048
     Dates: start: 20241217
  6. BUDESONIDE [Concomitant]
     Active Substance: BUDESONIDE
     Indication: Product used for unknown indication
     Route: 065

REACTIONS (6)
  - COVID-19 [Recovering/Resolving]
  - Nasal congestion [Not Recovered/Not Resolved]
  - Pyrexia [Recovered/Resolved]
  - Pharyngitis [Unknown]
  - Diarrhoea [Not Recovered/Not Resolved]
  - Cough [Unknown]

NARRATIVE: CASE EVENT DATE: 20250101
